FAERS Safety Report 6793780-1 (Version None)
Quarter: 2010Q2

REPORT INFORMATION
  Report Type: 
  Country: None (occurrence: None)
  Receive Date: 20100624
  Receipt Date: 20090417
  Transmission Date: 20101027
  Serious: Yes (Life-Threatening, Other)
  Sender: FDA-Public Use
  Company Number: JP-PFIZER INC-2009174200

PATIENT
  Age: 42 Year
  Sex: Female

DRUGS (1)
  1. RELPAX [Suspect]
     Indication: MIGRAINE
     Dosage: UNK
     Route: 048
     Dates: start: 20090212, end: 20090214

REACTIONS (1)
  - SUPRAVENTRICULAR TACHYCARDIA [None]
